FAERS Safety Report 8384926-2 (Version None)
Quarter: 2012Q2

REPORT INFORMATION
  Report Type: 
  Country: None (occurrence: None)
  Receive Date: 20120524
  Receipt Date: 20120524
  Transmission Date: 20120825
  Serious: Yes (Other)
  Sender: FDA-Public Use
  Company Number: US-PFIZER INC-2012081790

PATIENT
  Sex: Female
  Weight: 63.492 kg

DRUGS (7)
  1. ZOLOFT [Concomitant]
     Indication: DEPRESSION
     Dosage: 25 MG TWO TIMES A DAY
  2. METOPROLOL [Concomitant]
     Indication: CARDIAC DISORDER
     Dosage: 50 MG, DAILY
  3. ZOLOFT [Concomitant]
     Dosage: 50 MG DAILY
     Dates: start: 20120401, end: 20120516
  4. ZOLOFT [Concomitant]
     Dosage: 50 MG, 2X/DAY
     Dates: start: 20120517
  5. METOPROLOL [Concomitant]
     Indication: HYPERTENSION
  6. LEVOTHYROXINE [Concomitant]
     Indication: THYROID DISORDER
     Dosage: 25 MCG DAILY
  7. LIPITOR [Suspect]
     Indication: BLOOD CHOLESTEROL INCREASED
     Dosage: 10 MG, DAILY

REACTIONS (7)
  - MEMORY IMPAIRMENT [None]
  - ALTERED VISUAL DEPTH PERCEPTION [None]
  - DEMENTIA [None]
  - DEPRESSION [None]
  - CEREBROVASCULAR ACCIDENT [None]
  - VISUAL FIELD DEFECT [None]
  - INSOMNIA [None]
